FAERS Safety Report 12263911 (Version 3)
Quarter: 2016Q2

REPORT INFORMATION
  Report Type: Spontaneous
  Country: US (occurrence: US)
  Receive Date: 20160413
  Receipt Date: 20160421
  Transmission Date: 20160815
  Serious: Yes (Other)
  Sender: FDA-Public Use
  Company Number: US-JNJFOC-20160319824

PATIENT
  Age: 76 Year
  Sex: Male
  Weight: 83.92 kg

DRUGS (4)
  1. DARZALEX [Suspect]
     Active Substance: DARATUMUMAB
     Indication: PLASMA CELL MYELOMA
     Dosage: 16 MG/KG
     Route: 042
     Dates: start: 20160222, end: 20160222
  2. DARZALEX [Suspect]
     Active Substance: DARATUMUMAB
     Indication: PLASMACYTOMA
     Route: 042
     Dates: start: 20160222
  3. DARZALEX [Suspect]
     Active Substance: DARATUMUMAB
     Indication: PLASMACYTOMA
     Dosage: 16 MG/KG
     Route: 042
     Dates: start: 20160222, end: 20160222
  4. DARZALEX [Suspect]
     Active Substance: DARATUMUMAB
     Indication: PLASMA CELL MYELOMA
     Route: 042
     Dates: start: 20160222

REACTIONS (14)
  - Chest discomfort [Recovered/Resolved]
  - Diarrhoea [Recovered/Resolved]
  - Pain [Recovered/Resolved]
  - Pruritus [Unknown]
  - Musculoskeletal chest pain [Unknown]
  - Cough [Recovered/Resolved]
  - Fatigue [Unknown]
  - Insomnia [Unknown]
  - Myalgia [Unknown]
  - Nausea [Unknown]
  - Infusion related reaction [Recovered/Resolved]
  - Swelling [Unknown]
  - Nasal congestion [Recovered/Resolved]
  - Chest pain [Unknown]

NARRATIVE: CASE EVENT DATE: 201602
